FAERS Safety Report 5623381-X (Version None)
Quarter: 2008Q1

REPORT INFORMATION
  Report Type: 
  Country: None (occurrence: None)
  Receive Date: 20080212
  Receipt Date: 20080131
  Transmission Date: 20080703
  Serious: Yes (Other)
  Sender: FDA-Public Use
  Company Number: US-PFIZER INC-2008012409

PATIENT
  Age: 50 Year
  Sex: Female
  Weight: 120 kg

DRUGS (10)
  1. CHANTIX [Suspect]
     Indication: SMOKING CESSATION THERAPY
  2. ACCUPRIL [Concomitant]
  3. LOTREL [Concomitant]
  4. NORVASC [Concomitant]
     Indication: HYPERTENSION
  5. PRILOSEC [Concomitant]
  6. ALL OTHER THERAPEUTIC PRODUCTS [Concomitant]
  7. CATAPRES [Concomitant]
  8. ZANAFLEX [Concomitant]
  9. METHADONE HCL [Concomitant]
     Indication: PAIN
  10. TORADOL [Concomitant]

REACTIONS (5)
  - ABNORMAL DREAMS [None]
  - FATIGUE [None]
  - NAUSEA [None]
  - SKIN EXFOLIATION [None]
  - VOMITING [None]
